FAERS Safety Report 11100348 (Version 2)
Quarter: 2017Q2

REPORT INFORMATION
  Report Type: Spontaneous
  Country: FR (occurrence: FR)
  Receive Date: 20150508
  Receipt Date: 20170504
  Transmission Date: 20170829
  Serious: Yes (Death, Hospitalization, Other)
  Sender: FDA-Public Use
  Company Number: FR-RB PHARMACEUTICALS LIMITED-RB-078794-2015

PATIENT
  Age: 46 Year
  Sex: Female

DRUGS (3)
  1. LEDIPASVIR [Suspect]
     Active Substance: LEDIPASVIR
     Indication: HEPATITIS C
     Dosage: ONE DOSAGE FORM, ONCE DAILY
     Route: 048
     Dates: start: 20150127
  2. SOFOSBUVIR [Suspect]
     Active Substance: SOFOSBUVIR
     Indication: HEPATITIS C
     Dosage: ONE DOSAGE FORM, ONCE DAILY
     Route: 048
     Dates: start: 20150127
  3. SUBUTEX [Suspect]
     Active Substance: BUPRENORPHINE HYDROCHLORIDE
     Indication: PRODUCT USED FOR UNKNOWN INDICATION
     Dosage: UNK
     Route: 048

REACTIONS (3)
  - Arteriovenous malformation [Fatal]
  - Cerebrovascular accident [Fatal]
  - Incorrect route of drug administration [Recovered/Resolved]

NARRATIVE: CASE EVENT DATE: 20150302
